FAERS Safety Report 4713407-X (Version None)
Quarter: 2005Q3

REPORT INFORMATION
  Report Type: 
  Country: None (occurrence: None)
  Receive Date: 20050701
  Receipt Date: 20041006
  Transmission Date: 20060218
  Serious: Yes (Other)
  Sender: FDA-Public Use
  Company Number: US-2004-033353

PATIENT
  Age: 42 Year
  Sex: Female
  Weight: 62.6 kg

DRUGS (2)
  1. YASMIN [Suspect]
     Indication: MIGRAINE
     Dosage: 1 TAB(S), 1X/DAY, ORAL
     Route: 048
     Dates: start: 20040401, end: 20040915
  2. BENADRYL ^WARNER-LAMBERT^   /USA/ (DIPHENHYDRAMINE HYDROCHLORIDE) [Concomitant]

REACTIONS (1)
  - BLOOD PRESSURE INCREASED [None]
